FAERS Safety Report 10748667 (Version 2)
Quarter: 2015Q2

REPORT INFORMATION
  Report Type: Spontaneous
  Country: US (occurrence: None)
  Receive Date: 20150120
  Receipt Date: 20150420
  Transmission Date: 20150821
  Serious: No
  Sender: FDA-Public Use
  Company Number: AEGR000816

PATIENT
  Age: 76 Year
  Sex: Female
  Weight: 70.7 kg

DRUGS (18)
  1. TRAMADOL AND ACETAMINOPHEN (PARACETAMOL, TRAMADOL HYDROCHLORIDE) [Concomitant]
  2. OMEGA 3 6 9 (OMEGA 9 FATTY ACIDS, OMEGA-3 FATTY ACIDS, OMEGA-6 FATTY ACIDS) [Concomitant]
  3. IBUPROFEN. [Concomitant]
     Active Substance: IBUPROFEN
  4. VITAMIN D (ERGOCALCIFEROL) [Concomitant]
     Active Substance: ERGOCALCIFEROL
  5. JUXTAPID [Suspect]
     Active Substance: LOMITAPIDE MESYLATE
     Indication: TYPE IIA HYPERLIPIDAEMIA
     Route: 048
     Dates: start: 20140916, end: 20150109
  6. VITAMIN E (TOCOPHERYL ACETATE) [Concomitant]
  7. HYDROCHLOROTHIAZIDE. [Concomitant]
     Active Substance: HYDROCHLOROTHIAZIDE
  8. VITAMIN B12 [Concomitant]
     Active Substance: CYANOCOBALAMIN
  9. VITAMIN C [Concomitant]
     Active Substance: ASCORBIC ACID
  10. LACTULOSE. [Concomitant]
     Active Substance: LACTULOSE
  11. NEXIUM [Concomitant]
     Active Substance: ESOMEPRAZOLE MAGNESIUM
  12. ASPIRIN (ACETYLSALICYLIC ACID) [Concomitant]
     Active Substance: ASPIRIN
  13. CINNAMON. [Concomitant]
     Active Substance: CINNAMON
  14. TOPROL (METOPROLOL SUCCINATE) [Concomitant]
  15. TEMAZEPAM. [Concomitant]
     Active Substance: TEMAZEPAM
  16. ZINC (ZINC GLUCONATE) [Concomitant]
  17. CALCIUM [Concomitant]
     Active Substance: CALCIUM
  18. APAP W/BUTALBITAL [Concomitant]

REACTIONS (4)
  - Therapy cessation [None]
  - Constipation [None]
  - Weight decreased [None]
  - Urinary tract infection [None]

NARRATIVE: CASE EVENT DATE: 201409
